FAERS Safety Report 6159326-6 (Version None)
Quarter: 2009Q2

REPORT INFORMATION
  Report Type: 
  Country: None (occurrence: None)
  Receive Date: 20090414
  Receipt Date: 20090330
  Transmission Date: 20091009
  Serious: Yes (Hospitalization)
  Sender: FDA-Public Use
  Company Number: 09-038

PATIENT
  Age: 2 Year
  Sex: Female

DRUGS (3)
  1. CEFTRIAXONE [Suspect]
     Dosage: 100 MG/KG
  2. AMOXICILLIN [Suspect]
     Indication: BRONCHOPNEUMONIA
  3. OXACILLIN [Suspect]
     Dosage: 200MG/KG

REACTIONS (1)
  - DRUG RASH WITH EOSINOPHILIA AND SYSTEMIC SYMPTOMS [None]
